FAERS Safety Report 18771209 (Version 1)
Quarter: 2021Q1

REPORT INFORMATION
  Report Type: Spontaneous
  Country: GB (occurrence: GB)
  Receive Date: 20210122
  Receipt Date: 20210122
  Transmission Date: 20210419
  Serious: Yes (Hospitalization)
  Sender: FDA-Public Use
  Company Number: GB-JNJFOC-20210131032

PATIENT
  Age: 53 Year
  Sex: Female
  Weight: 77 kg

DRUGS (14)
  1. QVAR [Concomitant]
     Active Substance: BECLOMETHASONE DIPROPIONATE
     Route: 055
     Dates: start: 20190610
  2. LEVOTHYROXINE. [Concomitant]
     Active Substance: LEVOTHYROXINE
     Dosage: EVERY MORNING ON EMPTY STOMACH
     Dates: start: 20190610
  3. HUMALOG [Concomitant]
     Active Substance: INSULIN LISPRO
     Dosage: USE AS DIRECTED BY DIABETES TEAM
     Dates: start: 20190610
  4. SALBUTAMOL [Concomitant]
     Active Substance: ALBUTEROL
     Route: 055
     Dates: start: 20190610
  5. ATORVASTATIN [Concomitant]
     Active Substance: ATORVASTATIN
     Dates: start: 20190704
  6. CLOTRIMAZOLE. [Concomitant]
     Active Substance: CLOTRIMAZOLE
     Dosage: USE AS DIRECTED
     Dates: start: 20201120, end: 20201123
  7. LANSOPRAZOLE. [Concomitant]
     Active Substance: LANSOPRAZOLE
     Dosage: TRY TO WEAN DOWN WITH ANTACIDS.AS RISK
     Dates: start: 20190610
  8. GAVISCON ADVANCE [Concomitant]
     Active Substance: POTASSIUM BICARBONATE\SODIUM ALGINATE
     Dosage: UP TO 4 TIMES/DAY
     Dates: start: 20201008, end: 20201105
  9. MICOLETTE [Concomitant]
     Dosage: DAILY OR ALTERNATE DAYS ( AS PER LETTER FROM SE
     Dates: start: 20190610
  10. CANAGLIFLOZIN [Suspect]
     Active Substance: CANAGLIFLOZIN
     Indication: PRODUCT USED FOR UNKNOWN INDICATION
     Dosage: TAKE ONE DAILY 10/06/2019
     Route: 065
     Dates: start: 20190610
  11. ZEROCREAM [Concomitant]
     Dosage: APPLY DAILY TO VULNERABLE SKIN IN ABDOMINAL FO
     Dates: start: 20201015, end: 20201112
  12. IBUGEL [Concomitant]
     Active Substance: IBUPROFEN
     Dosage: APPLY
     Dates: start: 20190610
  13. TRAMADOL. [Concomitant]
     Active Substance: TRAMADOL
     Dosage: TAKE ONE TO TWO CAPSULES UPTO FOUR TIMES DAILY
     Dates: start: 20190610
  14. PARACETAMOL [Concomitant]
     Active Substance: ACETAMINOPHEN
     Dosage: TAKE ONE OR TWO 4 TIMES/DAY
     Dates: start: 20190610

REACTIONS (1)
  - Diabetic ketoacidosis [Recovered/Resolved]

NARRATIVE: CASE EVENT DATE: 20210105
